FAERS Safety Report 9730709 (Version 6)
Quarter: 2014Q1

REPORT INFORMATION
  Report Type: Report from Study
  Country: DE (occurrence: DE)
  Receive Date: 20131205
  Receipt Date: 20140121
  Transmission Date: 20141002
  Serious: Yes (Hospitalization)
  Sender: FDA-Public Use
  Company Number: DE-ROCHE-1297099

PATIENT
  Age: 73 Year
  Sex: Female
  Weight: 78 kg

DRUGS (9)
  1. RHUPH20/TRASTUZUMAB [Suspect]
     Indication: HER-2 POSITIVE BREAST CANCER
     Dosage: LAST DOSE PRIOR TO SAE: 29/JUL/2013
     Route: 058
     Dates: start: 20120914
  2. CAPECITABINE [Suspect]
     Indication: BREAST CANCER
     Route: 065
     Dates: start: 20130910
  3. TYVERB [Suspect]
     Indication: BREAST CANCER
     Route: 065
  4. PANTOZOL (GERMANY) [Concomitant]
     Route: 065
     Dates: start: 200907
  5. BETAHISTIN AL [Concomitant]
     Route: 065
     Dates: start: 200806
  6. CO-DIOVANE [Concomitant]
     Route: 065
     Dates: start: 200805
  7. SULPIRIDE [Concomitant]
     Route: 065
     Dates: start: 200806
  8. ASS100 [Concomitant]
     Route: 065
     Dates: start: 200806, end: 20130720
  9. CLEXANE [Concomitant]
     Route: 065
     Dates: start: 20130208, end: 20130727

REACTIONS (1)
  - Renal failure acute [Recovered/Resolved]
